FAERS Safety Report 5409582-4 (Version None)
Quarter: 2007Q3

REPORT INFORMATION
  Report Type: 
  Country: None (occurrence: None)
  Receive Date: 20070809
  Receipt Date: 20070719
  Transmission Date: 20080115
  Serious: No
  Sender: FDA-Public Use
  Company Number: FI-AVENTIS-200619330GDDC

PATIENT
  Age: 33 Year
  Sex: Male

DRUGS (3)
  1. ARAVA [Suspect]
     Route: 048
     Dates: start: 20020101, end: 20060401
  2. ARAVA [Suspect]
     Route: 048
     Dates: start: 20060401
  3. SALAZOPYRIN EN [Concomitant]
     Route: 048

REACTIONS (1)
  - DRUG EXPOSURE DURING PREGNANCY [None]
